FAERS Safety Report 22186101 (Version 2)
Quarter: 2023Q2

REPORT INFORMATION
  Report Type: Spontaneous
  Country: JP (occurrence: JP)
  Receive Date: 20230407
  Receipt Date: 20230602
  Transmission Date: 20230722
  Serious: Yes (Life-Threatening, Hospitalization, Other)
  Sender: FDA-Public Use
  Company Number: JP-TAKEDA-2023TJP002166

PATIENT

DRUGS (6)
  1. ZEJULA [Suspect]
     Active Substance: NIRAPARIB
     Indication: Fallopian tube cancer
     Dosage: 200 MG, QD (200 MILLIGRAM, QD)
     Route: 048
     Dates: start: 20230106, end: 20230125
  2. ZEJULA [Suspect]
     Active Substance: NIRAPARIB
     Dosage: 100 MG, QD
     Route: 048
     Dates: start: 20230222, end: 20230321
  3. PAXIL [Concomitant]
     Active Substance: PAROXETINE HYDROCHLORIDE
     Indication: Product used for unknown indication
     Dosage: 12.5 MG, QD (12.5 MILLIGRAM, QD )
     Route: 048
  4. URSO [Concomitant]
     Active Substance: URSODIOL
     Indication: Product used for unknown indication
     Dosage: 100 MG, TID (100 MILLIGRAM, TID )
     Route: 048
  5. MAGNESIUM OXIDE [Concomitant]
     Active Substance: MAGNESIUM OXIDE
     Indication: Product used for unknown indication
     Dosage: UNK
     Route: 048
  6. ETHYL LOFLAZEPATE [Concomitant]
     Active Substance: ETHYL LOFLAZEPATE
     Indication: Product used for unknown indication
     Dosage: 1 MG (1 MILLIGRAM)
     Route: 048

REACTIONS (3)
  - Thrombocytopenia [Recovered/Resolved]
  - Ecchymosis [Recovered/Resolved]
  - Dermatitis allergic [Unknown]
